FAERS Safety Report 23387281 (Version 2)
Quarter: 2024Q1

REPORT INFORMATION
  Report Type: Spontaneous
  Country: US (occurrence: US)
  Receive Date: 20240110
  Receipt Date: 20240117
  Transmission Date: 20240410
  Serious: Yes (Death, Hospitalization, Other)
  Sender: FDA-Public Use
  Company Number: US-PFIZER INC-202400009006

PATIENT
  Age: 39 Year
  Sex: Male

DRUGS (8)
  1. HYDROXYZINE PAMOATE [Suspect]
     Active Substance: HYDROXYZINE PAMOATE
     Dosage: UNK (INGESTION)
     Route: 048
  2. AMLODIPINE [Suspect]
     Active Substance: AMLODIPINE BESYLATE
     Dosage: UNK (INGESTION)
     Route: 048
  3. HYDRALAZINE [Suspect]
     Active Substance: HYDRALAZINE HYDROCHLORIDE
     Dosage: UNK (INGESTION)
     Route: 048
  4. LISINOPRIL [Suspect]
     Active Substance: LISINOPRIL
     Dosage: UNK (INGESTION)
     Route: 048
  5. LOSARTAN [Suspect]
     Active Substance: LOSARTAN
     Dosage: UNK (INGESTION)
     Route: 048
  6. METOPROLOL TARTRATE [Suspect]
     Active Substance: METOPROLOL TARTRATE
     Dosage: UNK (INGESTION)
     Route: 048
  7. GLIMEPIRIDE [Suspect]
     Active Substance: GLIMEPIRIDE
     Dosage: UNK (INGESTION)
     Route: 048
  8. QUETIAPINE [Suspect]
     Active Substance: QUETIAPINE
     Dosage: UNK (INGESTION)
     Route: 048

REACTIONS (1)
  - Completed suicide [Fatal]

NARRATIVE: CASE EVENT DATE: 20220101
